FAERS Safety Report 6125551-3 (Version None)
Quarter: 2009Q1

REPORT INFORMATION
  Report Type: 
  Country: None (occurrence: None)
  Receive Date: 20090320
  Receipt Date: 20090310
  Transmission Date: 20090719
  Serious: Yes (Other)
  Sender: FDA-Public Use
  Company Number: JP-BAYER-200910690BYL

PATIENT
  Age: 62 Year
  Sex: Male
  Weight: 67 kg

DRUGS (12)
  1. NEXAVAR [Suspect]
     Indication: RENAL CELL CARCINOMA STAGE IV
     Dosage: UNIT DOSE: 200 MG
     Route: 048
     Dates: start: 20081114
  2. NEXAVAR [Suspect]
     Dosage: UNIT DOSE: 200 MG
     Route: 048
     Dates: start: 20081213, end: 20090213
  3. LENDORMIN [Concomitant]
     Route: 048
  4. GASMOTIN [Concomitant]
     Route: 048
  5. RESPLEN [Concomitant]
     Route: 048
  6. PURSENNID [Concomitant]
     Route: 048
  7. VITAMEDIN [Concomitant]
     Route: 048
  8. FERROMIA [Concomitant]
     Route: 048
     Dates: start: 20090119
  9. FERROMIA [Concomitant]
     Route: 048
     Dates: end: 20081224
  10. LEPETAN [Concomitant]
     Route: 054
  11. LOXONIN [Concomitant]
     Route: 048
  12. SOLITA-T NO.1 [Concomitant]
     Route: 041
     Dates: start: 20081213, end: 20081213

REACTIONS (12)
  - ALOPECIA [None]
  - BACK PAIN [None]
  - CARDIAC DISORDER [None]
  - CHEILITIS [None]
  - CHEST PAIN [None]
  - ECZEMA [None]
  - GLOSSITIS [None]
  - HYPERTENSION [None]
  - ODYNOPHAGIA [None]
  - ONYCHOMYCOSIS [None]
  - PALMAR-PLANTAR ERYTHRODYSAESTHESIA SYNDROME [None]
  - RASH [None]
